FAERS Safety Report 6227199-9 (Version None)
Quarter: 2009Q2

REPORT INFORMATION
  Report Type: 
  Country: None (occurrence: None)
  Receive Date: 20090610
  Receipt Date: 20090528
  Transmission Date: 20091009
  Serious: Yes (Hospitalization, Other)
  Sender: FDA-Public Use
  Company Number: DE-WYE-H09556209

PATIENT
  Age: 68 Year
  Sex: Female

DRUGS (12)
  1. PANTOPRAZOLE SODIUM [Suspect]
     Indication: PROPHYLAXIS AGAINST GASTROINTESTINAL ULCER
     Dosage: 40 MG 1X PER 1 DAY ORAL
     Route: 048
  2. AVELOX [Suspect]
     Indication: CYSTITIS
     Dosage: 400 MG 1X PER  DAY ORAL
     Route: 048
     Dates: start: 20090408, end: 20090413
  3. LACTULOSE [Concomitant]
  4. ENOXAPARIN SODIUM [Concomitant]
  5. DIGITOXIN INJ [Concomitant]
  6. DILTIAZEM [Concomitant]
  7. DIPIPERON (PIPAMPERONE) [Concomitant]
  8. DURAGESIC-100 [Concomitant]
  9. FERRO-FOLSAN (FERROUS SULFATE/FOLIC ACID) [Concomitant]
  10. NOVALGIN (METAMIZOLE SODIUM) [Concomitant]
  11. GALANTAMINE HYDROBROMIDE [Concomitant]
  12. TORSEMIDE [Concomitant]

REACTIONS (3)
  - CLOSTRIDIUM DIFFICILE COLITIS [None]
  - CONFUSIONAL STATE [None]
  - DRUG INTERACTION [None]
